FAERS Safety Report 4286944-2 (Version None)
Quarter: 2004Q1

REPORT INFORMATION
  Report Type: 
  Country: None (occurrence: None)
  Receive Date: 20040206
  Receipt Date: 20030430
  Transmission Date: 20041129
  Serious: Yes (Hospitalization, Disabling)
  Sender: FDA-Public Use
  Company Number: WAES 0305USA00014

PATIENT
  Age: 77 Year
  Sex: Male
  Weight: 91 kg

DRUGS (45)
  1. TYLENOL (CAPLET) [Concomitant]
  2. LORTAB [Concomitant]
     Route: 048
     Dates: start: 20010901, end: 20010901
  3. LORTAB [Concomitant]
     Dates: start: 20020502
  4. ALBUTEROL [Concomitant]
     Route: 055
  5. MAALOX [Concomitant]
     Dates: start: 20010104
  6. AMLODIPINE BESYLATE [Concomitant]
     Route: 048
     Dates: start: 20010829
  7. ASPIRIN [Concomitant]
  8. COREG [Concomitant]
     Route: 048
     Dates: start: 20010803, end: 20010926
  9. COREG [Concomitant]
     Dates: start: 20010927, end: 20011226
  10. COREG [Concomitant]
     Dates: start: 20011227, end: 20020101
  11. COREG [Concomitant]
     Dates: start: 20020101, end: 20020501
  12. COREG [Concomitant]
     Dates: start: 20020501
  13. ANCEF [Concomitant]
     Route: 042
     Dates: start: 20010831, end: 20010831
  14. ANCEF [Concomitant]
     Route: 042
     Dates: start: 20010901, end: 20010901
  15. PLAVIX [Concomitant]
     Route: 048
     Dates: start: 20010911, end: 20010911
  16. PLAVIX [Concomitant]
     Route: 048
     Dates: start: 20010912
  17. FEXOFENADINE HYDROCHLORIDE [Concomitant]
     Route: 048
     Dates: start: 20020207
  18. GLYBURIDE [Concomitant]
     Route: 048
     Dates: start: 20010831, end: 20020206
  19. GLYBURIDE [Concomitant]
     Route: 048
     Dates: start: 20020207
  20. INFLUENZA VIRUS VACCINE [Concomitant]
     Route: 030
     Dates: start: 20011011, end: 20011011
  21. PRINIVIL [Concomitant]
     Route: 048
     Dates: end: 20010901
  22. PRINIVIL [Concomitant]
     Route: 048
     Dates: start: 20010829, end: 20011226
  23. PRINIVIL [Concomitant]
     Dates: start: 20011227, end: 20020206
  24. PRINIVIL [Concomitant]
     Dates: start: 20020207, end: 20020421
  25. PRINIVIL [Concomitant]
     Dates: start: 20020422
  26. CLARITIN [Concomitant]
     Dates: start: 20010101
  27. METRONIDAZOLE [Concomitant]
     Route: 061
     Dates: start: 20010801
  28. NAPROXEN [Concomitant]
     Indication: ARTHRALGIA
     Dates: start: 20010829
  29. NITROGLYCERIN [Concomitant]
     Dates: start: 20010830
  30. NITRO-BID [Concomitant]
  31. NITROGLYCERIN [Concomitant]
     Route: 060
     Dates: start: 20010901
  32. RANITIDINE HYDROCHLORIDE [Concomitant]
  33. ZOCOR [Suspect]
     Indication: HYPERCHOLESTEROLAEMIA
     Route: 048
     Dates: start: 20010101, end: 20010829
  34. ZOCOR [Suspect]
     Route: 048
     Dates: start: 20010901, end: 20020327
  35. ZOCOR [Suspect]
     Route: 048
     Dates: start: 20020328, end: 20020408
  36. UREA [Concomitant]
     Route: 061
  37. VERAPAMIL [Concomitant]
     Dates: end: 20010828
  38. VITAMINS (UNSPECIFIED) [Concomitant]
     Dates: start: 20020422
  39. COUMADIN [Suspect]
     Dates: start: 20010927, end: 20011003
  40. COUMADIN [Suspect]
     Dates: start: 20011005, end: 20011107
  41. COUMADIN [Suspect]
     Dates: start: 20011108, end: 20020206
  42. COUMADIN [Suspect]
     Dates: start: 20020207, end: 20020327
  43. COUMADIN [Suspect]
     Dates: start: 20020328, end: 20020501
  44. COUMADIN [Suspect]
     Dates: start: 20011004, end: 20011004
  45. COUMADIN [Suspect]
     Dates: start: 20020612

REACTIONS (30)
  - ATRIAL FIBRILLATION [None]
  - BRADYARRHYTHMIA [None]
  - CARDIAC FAILURE CONGESTIVE [None]
  - CARDIAC PACEMAKER MALFUNCTION [None]
  - CARPAL TUNNEL SYNDROME [None]
  - CHEST DISCOMFORT [None]
  - CHEST PAIN [None]
  - COLD SWEAT [None]
  - DEAFNESS BILATERAL [None]
  - DIABETES MELLITUS [None]
  - DYSPHAGIA [None]
  - FALL [None]
  - FATIGUE [None]
  - HAEMATOCHEZIA [None]
  - HAEMATURIA [None]
  - HEART RATE IRREGULAR [None]
  - LUMBAR SPINAL STENOSIS [None]
  - MEMORY IMPAIRMENT [None]
  - MYALGIA [None]
  - NEUROPATHY PERIPHERAL [None]
  - PYREXIA [None]
  - RADICULOPATHY [None]
  - RENAL ARTERY STENOSIS [None]
  - SICK SINUS SYNDROME [None]
  - SINUSITIS [None]
  - SPINAL OSTEOARTHRITIS [None]
  - TINNITUS [None]
  - URINARY RETENTION [None]
  - VENTRICULAR TACHYCARDIA [None]
  - VISION BLURRED [None]
